FAERS Safety Report 16692980 (Version 1)
Quarter: 2019Q3

REPORT INFORMATION
  Report Type: Spontaneous
  Country: US (occurrence: US)
  Receive Date: 20190812
  Receipt Date: 20190812
  Transmission Date: 20191004
  Serious: No
  Sender: FDA-Public Use
  Company Number: US-BIOGEN-2019BI00769317

PATIENT
  Sex: Female

DRUGS (2)
  1. TECFIDERA [Suspect]
     Active Substance: DIMETHYL FUMARATE
     Indication: MULTIPLE SCLEROSIS
     Dosage: TAKE ONE (120MG) CAPSULE BY MOUTH TWICE A DAY FOR 7 DAYS, THEN TAKE ONE (240MG) CAPSULE BY MOUTH ...
     Route: 048
     Dates: start: 20190720, end: 20190720
  2. TECFIDERA [Suspect]
     Active Substance: DIMETHYL FUMARATE
     Route: 065

REACTIONS (5)
  - Feeling hot [Unknown]
  - Decreased activity [Unknown]
  - Back pain [Unknown]
  - Tremor [Unknown]
  - Chills [Unknown]
